FAERS Safety Report 24585320 (Version 1)
Quarter: 2024Q4

REPORT INFORMATION
  Report Type: Spontaneous
  Country: US (occurrence: US)
  Receive Date: 20241106
  Receipt Date: 20241106
  Transmission Date: 20250115
  Serious: No
  Sender: ABBVIE
  Company Number: US-ABBVIE-5984174

PATIENT
  Age: 47 Year
  Sex: Male
  Weight: 117.93 kg

DRUGS (1)
  1. HUMIRA [Suspect]
     Active Substance: ADALIMUMAB
     Indication: Crohn^s disease
     Dosage: FORM STRENGTH 80MG
     Route: 058
     Dates: start: 2018, end: 2018

REACTIONS (3)
  - Skin disorder [Recovered/Resolved]
  - Furuncle [Recovered/Resolved]
  - Psoriasis [Recovered/Resolved]

NARRATIVE: CASE EVENT DATE: 20180101
